FAERS Safety Report 13542552 (Version 1)
Quarter: 2017Q2

REPORT INFORMATION
  Report Type: Spontaneous
  Country: US (occurrence: US)
  Receive Date: 20170512
  Receipt Date: 20170512
  Transmission Date: 20170830
  Serious: No
  Sender: FDA-Public Use
  Company Number: US-ROCHE-692718

PATIENT
  Age: 50 Year
  Sex: Male

DRUGS (4)
  1. FLUOROURACIL. [Concomitant]
     Active Substance: FLUOROURACIL
     Route: 065
  2. IRINOTECAN [Concomitant]
     Active Substance: IRINOTECAN
     Route: 065
  3. AVASTIN [Suspect]
     Active Substance: BEVACIZUMAB
     Indication: COLORECTAL CANCER
     Route: 065
  4. FOLINIC ACID [Concomitant]
     Active Substance: LEUCOVORIN
     Route: 065

REACTIONS (2)
  - Abdominal pain [Recovered/Resolved]
  - Diarrhoea [Unknown]
